FAERS Safety Report 5676209-6 (Version None)
Quarter: 2008Q1

REPORT INFORMATION
  Report Type: 
  Country: None (occurrence: None)
  Receive Date: 20080321
  Receipt Date: 20080312
  Transmission Date: 20080703
  Serious: Yes (Other)
  Sender: FDA-Public Use
  Company Number: BR-PFIZER INC-2008018236

PATIENT
  Age: 47 Year
  Sex: Female
  Weight: 80 kg

DRUGS (1)
  1. FARLUTAL [Suspect]
     Indication: MENORRHAGIA
     Dosage: FREQ:FOR 10 DAYS X 6 CYCLES
     Route: 048
     Dates: start: 20060101, end: 20080105

REACTIONS (7)
  - ANAEMIA [None]
  - BLOOD CHOLESTEROL INCREASED [None]
  - BLOOD PRESSURE INCREASED [None]
  - FORMICATION [None]
  - MENSTRUATION DELAYED [None]
  - VISUAL DISTURBANCE [None]
  - WEIGHT INCREASED [None]
